FAERS Safety Report 23568919 (Version 1)
Quarter: 2024Q1

REPORT INFORMATION
  Report Type: Report from Study
  Country: FR (occurrence: FR)
  Receive Date: 20240227
  Receipt Date: 20240227
  Transmission Date: 20240410
  Serious: Yes (Hospitalization, Other)
  Sender: FDA-Public Use
  Company Number: FR-ROCHE-3501675

PATIENT
  Age: 78 Year
  Sex: Female
  Weight: 58 kg

DRUGS (3)
  1. BEVACIZUMAB [Suspect]
     Active Substance: BEVACIZUMAB
     Indication: Neoplasm
     Dosage: DATE OF MOST RECENT DOSE OF CANCER TREATMENT 1 PRIOR TO AE/SAE ONSET ON 16/FEB/2023.
     Route: 065
     Dates: start: 20230126
  2. IRBESARTAN [Concomitant]
     Active Substance: IRBESARTAN
     Dosage: 150 MILLIGRAM
  3. ELIQUIS [Concomitant]
     Active Substance: APIXABAN
     Dosage: 5 MILLIGRAM

REACTIONS (1)
  - Small intestinal obstruction [Recovered/Resolved]

NARRATIVE: CASE EVENT DATE: 20230302
